FAERS Safety Report 24348965 (Version 1)
Quarter: 2024Q3

REPORT INFORMATION
  Report Type: Report from Study
  Country: IN (occurrence: IN)
  Receive Date: 20240923
  Receipt Date: 20240923
  Transmission Date: 20241017
  Serious: Yes (Other)
  Sender: ROCHE
  Company Number: IN-ROCHE-3407934

PATIENT
  Age: 58 Year
  Sex: Female
  Weight: 69.59 kg

DRUGS (1)
  1. KADCYLA [Suspect]
     Active Substance: ADO-TRASTUZUMAB EMTANSINE
     Indication: Breast cancer metastatic
     Route: 042
     Dates: start: 20230210

REACTIONS (3)
  - Off label use [Unknown]
  - Hypertension [Unknown]
  - Metastases to central nervous system [Unknown]
